FAERS Safety Report 6023519-9 (Version None)
Quarter: 2008Q4

REPORT INFORMATION
  Report Type: 
  Country: None (occurrence: None)
  Receive Date: 20081230
  Receipt Date: 20081222
  Transmission Date: 20090506
  Serious: No
  Sender: FDA-Public Use
  Company Number: PHEH2008US10763

PATIENT
  Sex: Male

DRUGS (1)
  1. TASIGNA [Suspect]
     Dosage: 400 MG, BID
     Route: 048
     Dates: start: 20081001

REACTIONS (2)
  - DRUG DISPENSING ERROR [None]
  - INTERCEPTED DRUG DISPENSING ERROR [None]
